FAERS Safety Report 4308064-0 (Version None)
Quarter: 2004Q1

REPORT INFORMATION
  Report Type: 
  Country: None (occurrence: None)
  Receive Date: 20040301
  Receipt Date: 20030423
  Transmission Date: 20041129
  Serious: No
  Sender: FDA-Public Use
  Company Number: US-BRISTOL-MYERS SQUIBB COMPANY-12251971

PATIENT
  Age: 51 Year
  Sex: Female
  Weight: 104 kg

DRUGS (5)
  1. GLUCOPHAGE [Suspect]
     Indication: DIABETES MELLITUS
     Route: 048
     Dates: start: 20000101
  2. DYAZIDE [Concomitant]
  3. AVAPRO [Concomitant]
  4. SINGULAIR [Concomitant]
  5. PREDNISONE [Concomitant]

REACTIONS (3)
  - ASTHENIA [None]
  - DIARRHOEA [None]
  - FATIGUE [None]
